FAERS Safety Report 13534236 (Version 1)
Quarter: 2017Q2

REPORT INFORMATION
  Report Type: Spontaneous
  Country: None (occurrence: US)
  Receive Date: 20170510
  Receipt Date: 20170510
  Transmission Date: 20170830
  Serious: No
  Sender: FDA-Public Use
  Company Number: US-SPEAR PHARMACEUTICALS-2020567

PATIENT
  Age: 70 Year
  Sex: Female
  Weight: 73.64 kg

DRUGS (7)
  1. SIMVASTATIN. [Concomitant]
     Active Substance: SIMVASTATIN
  2. ROPINIROLE. [Concomitant]
     Active Substance: ROPINIROLE
  3. VESICARE [Concomitant]
     Active Substance: SOLIFENACIN SUCCINATE
  4. FLUOROURACIL. [Suspect]
     Active Substance: FLUOROURACIL
     Indication: ACTINIC KERATOSIS
     Route: 061
     Dates: start: 20160317, end: 20160331
  5. DIGOXIN. [Concomitant]
     Active Substance: DIGOXIN
  6. METOPROLOL TARTRATE. [Concomitant]
     Active Substance: METOPROLOL TARTRATE
  7. ELIQUIS [Concomitant]
     Active Substance: APIXABAN

REACTIONS (3)
  - Hypersensitivity [None]
  - Rash generalised [None]
  - Unevaluable event [Recovering/Resolving]

NARRATIVE: CASE EVENT DATE: 20160407
